FAERS Safety Report 5186594-X (Version None)
Quarter: 2006Q4

REPORT INFORMATION
  Report Type: 
  Country: None (occurrence: None)
  Receive Date: 20061220
  Receipt Date: 20060303
  Transmission Date: 20070319
  Serious: No
  Sender: FDA-Public Use
  Company Number: US-AMGEN-US171016

PATIENT
  Sex: Female
  Weight: 67.2 kg

DRUGS (2)
  1. ENBREL [Suspect]
     Indication: PSORIASIS
     Route: 058
     Dates: start: 20051209
  2. METHOTREXATE [Concomitant]
     Route: 065
     Dates: start: 20051107

REACTIONS (2)
  - BLOOD PRESSURE INCREASED [None]
  - HEADACHE [None]
